APPROVED DRUG PRODUCT: PALIPERIDONE
Active Ingredient: PALIPERIDONE
Strength: 3MG
Dosage Form/Route: TABLET, EXTENDED RELEASE;ORAL
Application: A218755 | Product #002 | TE Code: AB
Applicant: ESKAYEF PHARMACEUTICALS LTD
Approved: Sep 4, 2025 | RLD: No | RS: No | Type: RX